FAERS Safety Report 5848989-8 (Version None)
Quarter: 2008Q3

REPORT INFORMATION
  Report Type: 
  Country: None (occurrence: None)
  Receive Date: 20080818
  Receipt Date: 20080818
  Transmission Date: 20090109
  Serious: Yes (Other)
  Sender: FDA-Public Use
  Company Number: None

PATIENT
  Sex: Female

DRUGS (4)
  1. MELOXICAM [Suspect]
     Indication: ANKYLOSING SPONDYLITIS
     Dosage: 7.5MG BID ORAL
     Route: 048
     Dates: start: 20060901
  2. MELOXICAM [Suspect]
     Indication: CONNECTIVE TISSUE DISORDER
     Dosage: 7.5MG BID ORAL
     Route: 048
     Dates: start: 20060901
  3. MELOXICAM [Suspect]
     Indication: FIBROMYALGIA
     Dosage: 7.5MG BID ORAL
     Route: 048
     Dates: start: 20060901
  4. MELOXICAM [Suspect]
     Indication: PAIN
     Dosage: 7.5MG BID ORAL
     Route: 048
     Dates: start: 20060901

REACTIONS (5)
  - CHILLS [None]
  - DIARRHOEA [None]
  - NAUSEA [None]
  - STOMACH DISCOMFORT [None]
  - VOMITING [None]
